FAERS Safety Report 6643933-8 (Version None)
Quarter: 2010Q1

REPORT INFORMATION
  Report Type: 
  Country: None (occurrence: None)
  Receive Date: 20100322
  Receipt Date: 20100302
  Transmission Date: 20100710
  Serious: Yes (Death, Other)
  Sender: FDA-Public Use
  Company Number: US-BAYER-201018096GPV

PATIENT
  Age: 35 Year
  Sex: Female

DRUGS (2)
  1. FLUDARABINE PHOSPHATE [Suspect]
     Indication: ALLOGENIC BONE MARROW TRANSPLANTATION THERAPY
     Route: 042
  2. CYCLOPHOSPHAMIDE [Concomitant]
     Indication: ALLOGENIC BONE MARROW TRANSPLANTATION THERAPY
     Route: 065

REACTIONS (10)
  - AREFLEXIA [None]
  - BRONCHOPULMONARY ASPERGILLOSIS [None]
  - COMA [None]
  - DYSPNOEA [None]
  - FUNGAL SEPSIS [None]
  - HYPOREFLEXIA [None]
  - LEUKOENCEPHALOPATHY [None]
  - NEUROTOXICITY [None]
  - RENAL FAILURE ACUTE [None]
  - UNRESPONSIVE TO STIMULI [None]
